FAERS Safety Report 4775953-2 (Version None)
Quarter: 2005Q3

REPORT INFORMATION
  Report Type: 
  Country: None (occurrence: None)
  Receive Date: 20050922
  Receipt Date: 20050912
  Transmission Date: 20060218
  Serious: Yes (Hospitalization)
  Sender: FDA-Public Use
  Company Number: GB-GLAXOSMITHKLINE-B0393665A

PATIENT
  Age: 73 Year

DRUGS (1)
  1. CHLORAMBUCIL [Suspect]
     Dosage: 2MG IN THE MORNING
     Route: 048

REACTIONS (4)
  - SEPSIS [None]
  - URINARY TRACT INFECTION [None]
  - UROSEPSIS [None]
  - WHITE BLOOD CELL COUNT DECREASED [None]
